FAERS Safety Report 7506375-9 (Version None)
Quarter: 2011Q2

REPORT INFORMATION
  Report Type: 
  Country: None (occurrence: None)
  Receive Date: 20110526
  Receipt Date: 20100824
  Transmission Date: 20111010
  Serious: No
  Sender: FDA-Public Use
  Company Number: US-ABBOTT-10P-163-0667496-00

PATIENT
  Sex: Female

DRUGS (3)
  1. UNKNOWN VITAMIN D MEDICATION [Concomitant]
     Indication: PRODUCT USED FOR UNKNOWN INDICATION
  2. ZEMPLAR [Suspect]
     Indication: PRODUCT USED FOR UNKNOWN INDICATION
  3. ZEMPLAR [Suspect]
     Dosage: PATIENT BRIEFLY STOPPED MEDICATION-PROBABLY LESS THAN 1 MONTH

REACTIONS (2)
  - NAUSEA [None]
  - FEELING ABNORMAL [None]
